FAERS Safety Report 7150687-8 (Version None)
Quarter: 2010Q4

REPORT INFORMATION
  Report Type: 
  Country: None (occurrence: None)
  Receive Date: 20101210
  Receipt Date: 20101202
  Transmission Date: 20110411
  Serious: Yes (Hospitalization, Other)
  Sender: FDA-Public Use
  Company Number: US-US-EMD SERONO, INC.-231967K07USA

PATIENT
  Sex: Female
  Weight: 70 kg

DRUGS (7)
  1. REBIF [Suspect]
     Indication: MULTIPLE SCLEROSIS
     Route: 058
     Dates: start: 20021209, end: 20060929
  2. REBIF [Suspect]
     Route: 058
     Dates: start: 20070106
  3. RUBINUL [Concomitant]
     Route: 048
  4. PROVIGIL [Concomitant]
     Route: 048
  5. NASONEX [Concomitant]
     Route: 045
  6. FIBERCON [Concomitant]
     Route: 065
  7. CALCIUM [Concomitant]
     Route: 065

REACTIONS (1)
  - BREAST CANCER STAGE II [None]
